FAERS Safety Report 21187044 (Version 1)
Quarter: 2022Q3

REPORT INFORMATION
  Report Type: Report from Study
  Country: BR (occurrence: BR)
  Receive Date: 20220808
  Receipt Date: 20220808
  Transmission Date: 20221027
  Serious: Yes (Other)
  Sender: FDA-Public Use
  Company Number: BR-UCBSA-2022044969

PATIENT
  Sex: Male
  Weight: 87 kg

DRUGS (1)
  1. CERTOLIZUMAB PEGOL [Suspect]
     Active Substance: CERTOLIZUMAB PEGOL
     Indication: Ankylosing spondylitis
     Dosage: 200 MILLIGRAM, EV 15 DAYS
     Route: 058
     Dates: start: 20220507

REACTIONS (11)
  - Ankylosing spondylitis [Unknown]
  - Headache [Unknown]
  - Mass [Not Recovered/Not Resolved]
  - Oral disorder [Not Recovered/Not Resolved]
  - Injection site pain [Not Recovered/Not Resolved]
  - Loss of personal independence in daily activities [Unknown]
  - Pyrexia [Unknown]
  - Arthralgia [Unknown]
  - Pain in extremity [Unknown]
  - Product storage error [Unknown]
  - Drug ineffective [Unknown]

NARRATIVE: CASE EVENT DATE: 20220101
